FAERS Safety Report 8800103 (Version 3)
Quarter: 2012Q4

REPORT INFORMATION
  Report Type: 
  Country: BE (occurrence: BE)
  Receive Date: 20120921
  Receipt Date: 20121002
  Transmission Date: 20130627
  Serious: Yes (Other)
  Sender: FDA-Public Use
  Company Number: PHHY2012BE081371

PATIENT
  Age: 73 Year
  Sex: Female

DRUGS (2)
  1. ACLASTA [Suspect]
     Indication: OSTEOPOROSIS POSTMENOPAUSAL
     Dosage: 5 mg amp.
     Route: 042
     Dates: start: 2011
  2. GLIVEC [Concomitant]
     Indication: LEUKAEMIA

REACTIONS (2)
  - Osteonecrosis of jaw [Recovering/Resolving]
  - Pain in jaw [Recovering/Resolving]
